FAERS Safety Report 8420615-3 (Version None)
Quarter: 2012Q2

REPORT INFORMATION
  Report Type: 
  Country: None (occurrence: None)
  Receive Date: 20120608
  Receipt Date: 20120531
  Transmission Date: 20120825
  Serious: No
  Sender: FDA-Public Use
  Company Number: US-BIOGENIDEC-2012BI019321

PATIENT
  Age: 20 Year
  Sex: Female

DRUGS (2)
  1. TYSABRI [Suspect]
     Indication: MULTIPLE SCLEROSIS
     Route: 042
     Dates: start: 20061124, end: 20071127
  2. TYSABRI [Suspect]
     Route: 042
     Dates: start: 20100907

REACTIONS (6)
  - CONFUSIONAL STATE [None]
  - VAGINAL DISCHARGE [None]
  - FALL [None]
  - FOOD ALLERGY [None]
  - ECZEMA [None]
  - PERSONALITY DISORDER [None]
